FAERS Safety Report 10204897 (Version 1)
Quarter: 2014Q2

REPORT INFORMATION
  Report Type: Spontaneous
  Country: HK (occurrence: HK)
  Receive Date: 20140529
  Receipt Date: 20140529
  Transmission Date: 20141212
  Serious: Yes (Hospitalization)
  Sender: FDA-Public Use
  Company Number: HK-SA-2014SA063536

PATIENT
  Age: 59 Year
  Sex: Male

DRUGS (9)
  1. TAXOTERE [Suspect]
     Indication: NASOPHARYNGEAL CANCER
     Route: 065
  2. TAXOTERE [Suspect]
     Indication: NASOPHARYNGEAL CANCER
     Route: 065
  3. TAXOTERE [Suspect]
     Indication: NASOPHARYNGEAL CANCER
     Route: 065
     Dates: start: 20140428
  4. CISPLATIN [Suspect]
     Indication: NASOPHARYNGEAL CANCER
     Route: 065
  5. CISPLATIN [Suspect]
     Indication: NASOPHARYNGEAL CANCER
     Route: 065
  6. CISPLATIN [Suspect]
     Indication: NASOPHARYNGEAL CANCER
     Route: 065
     Dates: start: 20140428
  7. FLUOROURACIL [Suspect]
     Indication: NASOPHARYNGEAL CANCER
     Route: 065
  8. FLUOROURACIL [Suspect]
     Indication: NASOPHARYNGEAL CANCER
     Route: 065
  9. FLUOROURACIL [Suspect]
     Indication: NASOPHARYNGEAL CANCER
     Route: 065
     Dates: start: 20140428

REACTIONS (3)
  - Hypokalaemia [Recovered/Resolved]
  - Pyrexia [Recovered/Resolved]
  - Hyponatraemia [Recovered/Resolved]
